FAERS Safety Report 9859966 (Version 2)
Quarter: 2014Q1

REPORT INFORMATION
  Report Type: Spontaneous
  Country: US (occurrence: US)
  Receive Date: 20140131
  Receipt Date: 20140131
  Transmission Date: 20141002
  Serious: Yes (Hospitalization, Other)
  Sender: FDA-Public Use
  Company Number: US-ABBVIE-13P-163-1133455-00

PATIENT
  Age: 48 Year
  Sex: Male

DRUGS (6)
  1. HUMIRA [Suspect]
     Indication: PSORIATIC ARTHROPATHY
     Dates: start: 201108
  2. ARAVA [Suspect]
     Indication: PRODUCT USED FOR UNKNOWN INDICATION
     Route: 048
  3. VITAMIN B COMPLEX [Concomitant]
     Indication: PRODUCT USED FOR UNKNOWN INDICATION
     Route: 048
  4. DULOXETINE [Concomitant]
     Indication: PRODUCT USED FOR UNKNOWN INDICATION
     Route: 048
  5. LISINOPRIL-HYDROCHLOROTHIAZIDE [Concomitant]
     Indication: PRODUCT USED FOR UNKNOWN INDICATION
     Dosage: 10/12.5MG PER TABLET
     Route: 048
  6. SIMVASTATIN [Concomitant]
     Indication: PRODUCT USED FOR UNKNOWN INDICATION

REACTIONS (15)
  - Pulmonary mass [Recovering/Resolving]
  - Histoplasmosis [Recovered/Resolved]
  - Lymphadenopathy mediastinal [Recovering/Resolving]
  - Hypertension [Unknown]
  - Hyperlipidaemia [Unknown]
  - Sleep apnoea syndrome [Unknown]
  - Pulmonary mass [Unknown]
  - Psoriatic arthropathy [Unknown]
  - Abnormal loss of weight [Unknown]
  - Fatigue [Unknown]
  - Early satiety [Unknown]
  - Pyrexia [Unknown]
  - Chills [Unknown]
  - Dyspnoea [Unknown]
  - Psoriatic arthropathy [Unknown]
